FAERS Safety Report 10930681 (Version 1)
Quarter: 2015Q1

REPORT INFORMATION
  Report Type: Spontaneous
  Country: US (occurrence: None)
  Receive Date: 20150318
  Receipt Date: 20150318
  Transmission Date: 20150721
  Serious: No
  Sender: FDA-Public Use
  Company Number: None

PATIENT
  Age: 94 Year
  Sex: Female
  Weight: 57 kg

DRUGS (10)
  1. ELIQUIS [Suspect]
     Active Substance: APIXABAN
     Indication: ATRIAL FIBRILLATION
     Dosage: 1 TAB
     Route: 048
     Dates: start: 20150312, end: 20150317
  2. VITAMIN D [Concomitant]
     Active Substance: CHOLECALCIFEROL
  3. AMIODARONE [Concomitant]
     Active Substance: AMIODARONE
  4. KEFLEX [Concomitant]
     Active Substance: CEPHALEXIN
  5. MIRALAX [Concomitant]
     Active Substance: POLYETHYLENE GLYCOL 3350
  6. TYLENOL [Concomitant]
     Active Substance: ACETAMINOPHEN
  7. LEVOTHYROXINE [Concomitant]
     Active Substance: LEVOTHYROXINE
  8. CALCIUM + D [Concomitant]
     Active Substance: CALCIUM\VITAMIN D
  9. ATENOLOL. [Concomitant]
     Active Substance: ATENOLOL
  10. CYANACOBALAMIN [Concomitant]

REACTIONS (1)
  - Hepatic enzyme increased [None]

NARRATIVE: CASE EVENT DATE: 20150316
